FAERS Safety Report 8989158 (Version 2)
Quarter: 2013Q1

REPORT INFORMATION
  Report Type: Spontaneous
  Country: US (occurrence: None)
  Receive Date: 20121219
  Receipt Date: 20130115
  Transmission Date: 20140127
  Serious: Yes (Death, Other)
  Sender: FDA-Public Use
  Company Number: ACO_33328_2012

PATIENT
  Sex: Female

DRUGS (2)
  1. AMPYRA [Suspect]
     Indication: MULTIPLE SCLEROSIS
     Route: 048
     Dates: start: 20100809
  2. DEPAKOTE (VALPROATE SEMISODIUM) [Concomitant]

REACTIONS (3)
  - Convulsion [None]
  - Urinary tract infection [None]
  - Cystitis [None]
